FAERS Safety Report 20078244 (Version 5)
Quarter: 2022Q1

REPORT INFORMATION
  Report Type: Spontaneous
  Country: PL (occurrence: PL)
  Receive Date: 20211117
  Receipt Date: 20220114
  Transmission Date: 20220424
  Serious: Yes (Hospitalization, Other)
  Sender: FDA-Public Use
  Company Number: PL-EMA-DD-20211028-kumarvn_p-115043

PATIENT
  Age: 60 Year
  Sex: Male

DRUGS (22)
  1. CLOPIDOGREL [Suspect]
     Active Substance: CLOPIDOGREL BISULFATE
     Indication: Cardiac failure chronic
     Dosage: 75 MG, QD
     Route: 065
  2. PANTOPRAZOLE [Suspect]
     Active Substance: PANTOPRAZOLE
     Indication: Cardiac failure chronic
     Dosage: UNK
     Route: 065
  3. RAMIPRIL [Suspect]
     Active Substance: RAMIPRIL
     Indication: Cardiac failure chronic
     Dosage: 2.5 MILLIGRAM, DAILY
     Route: 065
  4. ROSUVASTATIN [Suspect]
     Active Substance: ROSUVASTATIN
     Indication: Cardiac failure chronic
     Dosage: 40 MILLIGRAM, DAILY
     Route: 065
  5. TORSEMIDE [Suspect]
     Active Substance: TORSEMIDE
     Indication: Cardiac failure chronic
     Dosage: 10 MG, UNK
     Route: 065
  6. TORSEMIDE [Suspect]
     Active Substance: TORSEMIDE
     Route: 065
  7. TORSEMIDE [Suspect]
     Active Substance: TORSEMIDE
     Route: 065
  8. TORSEMIDE [Suspect]
     Active Substance: TORSEMIDE
     Dosage: 10 MILLIGRAM
     Route: 065
  9. BISOPROLOL [Suspect]
     Active Substance: BISOPROLOL
     Indication: Cardiac failure chronic
     Dosage: 2.5 MILLIGRAM, DAILY
     Route: 065
  10. ASPIRIN [Suspect]
     Active Substance: ASPIRIN
     Indication: Cardiac failure chronic
     Dosage: 75 MILLIGRAM, DAILY
     Route: 065
  11. APIXABAN [Suspect]
     Active Substance: APIXABAN
     Dosage: 2.5 MG, BID
     Route: 065
  12. APIXABAN [Suspect]
     Active Substance: APIXABAN
     Indication: Cardiac failure chronic
     Dosage: 2.5 MG, BID
     Route: 065
  13. APIXABAN [Suspect]
     Active Substance: APIXABAN
     Indication: Cardiac failure chronic
     Dosage: 2.5 MG, BID
     Route: 065
  14. APIXABAN [Suspect]
     Active Substance: APIXABAN
     Indication: Cardiac failure chronic
     Dosage: 2.5 MG, BID
     Route: 065
  15. APIXABAN [Suspect]
     Active Substance: APIXABAN
     Route: 065
  16. FUROSEMIDE [Suspect]
     Active Substance: FUROSEMIDE
     Indication: Cardiac failure chronic
     Dosage: 20-40 MG
     Route: 065
  17. ENTRESTO [Concomitant]
     Active Substance: SACUBITRIL\VALSARTAN
     Indication: Product used for unknown indication
     Dosage: 49/51 MG ()
     Route: 065
  18. ENTRESTO [Concomitant]
     Active Substance: SACUBITRIL\VALSARTAN
     Dosage: 24/26 ()
     Route: 065
  19. ENTRESTO [Concomitant]
     Active Substance: SACUBITRIL\VALSARTAN
     Route: 065
  20. ENTRESTO [Concomitant]
     Active Substance: SACUBITRIL\VALSARTAN
     Route: 065
  21. ENTRESTO [Concomitant]
     Active Substance: SACUBITRIL\VALSARTAN
     Route: 065
  22. ENTRESTO [Concomitant]
     Active Substance: SACUBITRIL\VALSARTAN
     Route: 065

REACTIONS (9)
  - Myocardial infarction [Unknown]
  - Off label use [Unknown]
  - Atrial fibrillation [Unknown]
  - Product use in unapproved indication [Unknown]
  - Dyslipidaemia [Unknown]
  - Intentional product use issue [Unknown]
  - Cardiac failure [Recovering/Resolving]
  - Intentional product use issue [Unknown]
  - Drug abuse [Unknown]

NARRATIVE: CASE EVENT DATE: 20201001
